FAERS Safety Report 8805914 (Version 1)
Quarter: 2012Q4

REPORT INFORMATION
  Report Type: Spontaneous
  Country: GR (occurrence: None)
  Receive Date: 20120918
  Receipt Date: 20120918
  Transmission Date: 20130627
  Serious: Yes (Other)
  Sender: FDA-Public Use
  Company Number: COL_12327_2012

PATIENT
  Age: 38 Year
  Sex: Female

DRUGS (1)
  1. SODIUM FLUORIDE [Suspect]
     Indication: SENSITIVITY OF TEETH
     Route: 048

REACTIONS (2)
  - Gingival pain [None]
  - Reaction to drug excipients [None]
